FAERS Safety Report 14164033 (Version 3)
Quarter: 2018Q1

REPORT INFORMATION
  Report Type: Spontaneous
  Country: US (occurrence: US)
  Receive Date: 20171107
  Receipt Date: 20180206
  Transmission Date: 20180508
  Serious: Yes (Other)
  Sender: FDA-Public Use
  Company Number: US-ASTRAZENECA-2017SF12004

PATIENT
  Age: 529 Month
  Sex: Male
  Weight: 117.9 kg

DRUGS (25)
  1. FARXIGA [Suspect]
     Active Substance: DAPAGLIFLOZIN PROPANEDIOL
     Indication: TYPE 2 DIABETES MELLITUS
     Route: 048
     Dates: start: 2016, end: 2017
  2. LYRICA [Concomitant]
     Active Substance: PREGABALIN
     Indication: NECK PAIN
     Route: 048
     Dates: start: 20171031
  3. CARVEDILOL. [Concomitant]
     Active Substance: CARVEDILOL
     Indication: BLOOD PRESSURE ABNORMAL
     Route: 048
     Dates: start: 20171214
  4. LASIX [Concomitant]
     Active Substance: FUROSEMIDE
     Indication: FLUID RETENTION
     Route: 048
     Dates: start: 20160603
  5. SPIRONOLACTONE. [Concomitant]
     Active Substance: SPIRONOLACTONE
     Indication: CARDIAC DISORDER
     Route: 048
     Dates: start: 20160301
  6. VITAMIN D2 [Concomitant]
     Active Substance: ERGOCALCIFEROL
     Indication: SUPPLEMENTATION THERAPY
     Dosage: 50000 IU
     Route: 048
  7. FARXIGA [Suspect]
     Active Substance: DAPAGLIFLOZIN PROPANEDIOL
     Indication: TYPE 2 DIABETES MELLITUS
     Route: 048
     Dates: start: 201601
  8. METFORMIN [Concomitant]
     Active Substance: METFORMIN HYDROCHLORIDE
     Indication: DIABETES MELLITUS
     Route: 048
     Dates: start: 20160701, end: 201609
  9. VICTOZA [Concomitant]
     Active Substance: LIRAGLUTIDE
     Indication: DIABETES MELLITUS
     Dosage: 18MG/3MLLNJ PEN 3 X 3ML
     Route: 065
     Dates: start: 20171016
  10. WARFARIN [Concomitant]
     Active Substance: WARFARIN
     Dates: start: 20100113
  11. ALLOPURINOL. [Concomitant]
     Active Substance: ALLOPURINOL
     Indication: BLOOD PRESSURE ABNORMAL
     Route: 048
     Dates: start: 20160708
  12. CIALIS [Concomitant]
     Active Substance: TADALAFIL
     Indication: ERECTILE DYSFUNCTION
     Route: 048
     Dates: start: 20160708, end: 201702
  13. DULOXETINE. [Concomitant]
     Active Substance: DULOXETINE
     Indication: NEURALGIA
     Route: 048
     Dates: start: 20171204
  14. DIGOXIN. [Concomitant]
     Active Substance: DIGOXIN
     Indication: BLOOD PRESSURE ABNORMAL
     Route: 048
     Dates: start: 20171214
  15. OMEPRAZOL [Concomitant]
     Active Substance: OMEPRAZOLE
     Indication: ANTACID THERAPY
     Route: 048
  16. GABAPENTIN. [Concomitant]
     Active Substance: GABAPENTIN
     Indication: DIABETES MELLITUS
     Route: 048
     Dates: start: 201709, end: 201710
  17. PRINIVIL/ZESTRIL [Concomitant]
     Indication: BLOOD PRESSURE ABNORMAL
     Route: 048
     Dates: start: 20160223
  18. TORSEMIDE. [Concomitant]
     Active Substance: TORSEMIDE
     Dates: start: 20100129
  19. ATORVASTATIN [Concomitant]
     Active Substance: ATORVASTATIN
     Indication: BLOOD CHOLESTEROL
     Route: 048
     Dates: start: 20160301
  20. GLIPIZIDE/GLUCOTROL [Concomitant]
     Indication: DIABETES MELLITUS
     Route: 048
     Dates: start: 20160708
  21. HUMALOG [Concomitant]
     Active Substance: INSULIN LISPRO
     Indication: DIABETES MELLITUS
     Dosage: 100 U/ML KWIKPEN INJ 5X3ML, 7 UNITS
     Route: 065
     Dates: start: 20171016
  22. GABAPENTIN. [Concomitant]
     Active Substance: GABAPENTIN
     Indication: DIABETES MELLITUS
     Route: 048
     Dates: start: 20171016
  23. OMEPRAZOL [Concomitant]
     Active Substance: OMEPRAZOLE
     Indication: ANTACID THERAPY
     Route: 048
     Dates: start: 20160503, end: 201710
  24. BYSTOLIC [Concomitant]
     Active Substance: NEBIVOLOL HYDROCHLORIDE
     Indication: CARDIAC DISORDER
     Route: 048
     Dates: start: 20160520
  25. FENOFIBRATE. [Concomitant]
     Active Substance: FENOFIBRATE
     Indication: BLOOD CHOLESTEROL
     Route: 048
     Dates: start: 20160301

REACTIONS (9)
  - Diabetic neuropathy [Unknown]
  - Renal impairment [Unknown]
  - Renal disorder [Unknown]
  - Hypertension [Unknown]
  - Cardiac failure congestive [Unknown]
  - Renal injury [Unknown]
  - Chronic kidney disease [Unknown]
  - Blood cholesterol increased [Unknown]
  - Renal failure [Unknown]

NARRATIVE: CASE EVENT DATE: 201603
